FAERS Safety Report 9267812 (Version 2)
Quarter: 2014Q1

REPORT INFORMATION
  Report Type: Report from Study
  Country: US (occurrence: US)
  Receive Date: 20130502
  Receipt Date: 20140217
  Transmission Date: 20141002
  Serious: No
  Sender: FDA-Public Use
  Company Number: US-ALEXION-A201201095

PATIENT
  Age: 8 Year
  Sex: Female

DRUGS (5)
  1. SOLIRIS [Suspect]
     Indication: HAEMOLYTIC URAEMIC SYNDROME
     Dosage: 600 MG
     Route: 042
     Dates: start: 20120430
  2. SOLIRIS [Suspect]
     Dosage: 300 MG
     Route: 042
     Dates: start: 20120509
  3. CIPROFLOXACIN [Concomitant]
     Dosage: UNK, QD
  4. ERGOCALCIFEROL [Concomitant]
     Dosage: UNK, QD
  5. PREVACID [Concomitant]
     Dosage: UNK, QD

REACTIONS (1)
  - Platelet count decreased [Recovering/Resolving]
